FAERS Safety Report 12469600 (Version 1)
Quarter: 2016Q2

REPORT INFORMATION
  Report Type: Spontaneous
  Country: GB (occurrence: GB)
  Receive Date: 20160615
  Receipt Date: 20160615
  Transmission Date: 20160815
  Serious: Yes (Hospitalization)
  Sender: FDA-Public Use
  Company Number: GB-DSJP-DSU-2016-120225

PATIENT

DRUGS (9)
  1. CHOLESTAGEL [Suspect]
     Active Substance: COLESEVELAM HYDROCHLORIDE
     Dosage: 1875 MG, QD
  2. IBUPROFEN. [Concomitant]
     Active Substance: IBUPROFEN
     Indication: PRODUCT USED FOR UNKNOWN INDICATION
     Dosage: UNK
  3. ORAMORPH [Concomitant]
     Active Substance: MORPHINE SULFATE
     Indication: PRODUCT USED FOR UNKNOWN INDICATION
     Dosage: UNK
  4. CHOLESTAGEL [Suspect]
     Active Substance: COLESEVELAM HYDROCHLORIDE
     Dosage: 625 MG, UNK
     Route: 048
     Dates: start: 20160512, end: 2016
  5. CHOLESTAGEL [Suspect]
     Active Substance: COLESEVELAM HYDROCHLORIDE
     Indication: BILE ACID MALABSORPTION
     Dosage: 625 MG (VARIED FROM 1 TO 3 TABLETS), BID
     Route: 048
     Dates: start: 20160411, end: 20160508
  6. PARACETAMOL [Concomitant]
     Active Substance: ACETAMINOPHEN
     Indication: PRODUCT USED FOR UNKNOWN INDICATION
     Dosage: UNK
  7. CHOLESTAGEL [Suspect]
     Active Substance: COLESEVELAM HYDROCHLORIDE
     Dosage: 625 MG, QD
  8. TRAMADOL                           /00599202/ [Concomitant]
     Active Substance: TRAMADOL
     Indication: PRODUCT USED FOR UNKNOWN INDICATION
     Dosage: UNK
     Dates: end: 20160517
  9. COCODAMOL [Concomitant]
     Active Substance: ACETAMINOPHEN\CODEINE PHOSPHATE
     Indication: PRODUCT USED FOR UNKNOWN INDICATION
     Dosage: UNK

REACTIONS (13)
  - Urine flow decreased [Not Recovered/Not Resolved]
  - Gastrointestinal pain [Unknown]
  - Off label use [Recovered/Resolved]
  - Nausea [Not Recovered/Not Resolved]
  - Malaise [Not Recovered/Not Resolved]
  - Abnormal faeces [Unknown]
  - Abdominal pain [Not Recovered/Not Resolved]
  - Urinary retention [Recovering/Resolving]
  - Loss of consciousness [Unknown]
  - Bladder pain [Not Recovered/Not Resolved]
  - Incorrect dose administered [Recovered/Resolved]
  - Abdominal discomfort [Unknown]
  - Asthenia [Unknown]

NARRATIVE: CASE EVENT DATE: 20160411
